FAERS Safety Report 16041460 (Version 1)
Quarter: 2019Q1

REPORT INFORMATION
  Report Type: Spontaneous
  Country: US (occurrence: US)
  Receive Date: 20190306
  Receipt Date: 20190306
  Transmission Date: 20190418
  Serious: No
  Sender: FDA-Public Use
  Company Number: US-AKORN PHARMACEUTICALS-2018AKN01397

PATIENT
  Sex: Male
  Weight: 108.84 kg

DRUGS (4)
  1. MYORISAN [Suspect]
     Active Substance: ISOTRETINOIN
     Indication: ACNE CYSTIC
     Dosage: 40 MG, 1X/DAY
     Dates: start: 20180205, end: 2018
  2. MYORISAN [Suspect]
     Active Substance: ISOTRETINOIN
     Dosage: 40 MG, 2X/DAY
     Dates: start: 2018, end: 2018
  3. DIFFERIN [Concomitant]
     Active Substance: ADAPALENE
  4. PR BENZOYL PEROXIDE [Concomitant]

REACTIONS (4)
  - Scar [Unknown]
  - Xerosis [Unknown]
  - Post inflammatory pigmentation change [Unknown]
  - Treatment noncompliance [Unknown]

NARRATIVE: CASE EVENT DATE: 2018
